FAERS Safety Report 22055475 (Version 1)
Quarter: 2023Q1

REPORT INFORMATION
  Report Type: Spontaneous
  Country: US (occurrence: US)
  Receive Date: 20230302
  Receipt Date: 20230302
  Transmission Date: 20230417
  Serious: Yes (Other)
  Sender: FDA-Public Use
  Company Number: US-BAYER-2023A023042

PATIENT
  Age: 60 Year
  Sex: Female

DRUGS (1)
  1. MIRENA [Suspect]
     Active Substance: LEVONORGESTREL
     Indication: Postmenopausal haemorrhage
     Dosage: 20?G/DAY
     Route: 015
     Dates: start: 201812, end: 20220922

REACTIONS (3)
  - Postmenopausal haemorrhage [None]
  - Drug ineffective for unapproved indication [None]
  - Off label use of device [None]

NARRATIVE: CASE EVENT DATE: 20181201
